FAERS Safety Report 15665575 (Version 1)
Quarter: 2018Q4

REPORT INFORMATION
  Report Type: Spontaneous
  Country: US (occurrence: US)
  Receive Date: 20181128
  Receipt Date: 20181128
  Transmission Date: 20190205
  Serious: Yes (Death, Life-Threatening, Hospitalization, Other)
  Sender: FDA-Public Use
  Company Number: None

PATIENT
  Age: 48 Year
  Sex: Male
  Weight: 112.7 kg

DRUGS (1)
  1. YESCARTA [Suspect]
     Active Substance: AXICABTAGENE CILOLEUCEL
     Indication: DIFFUSE LARGE B-CELL LYMPHOMA REFRACTORY
     Dosage: ?          OTHER FREQUENCY:ONCE;?
     Route: 042
     Dates: start: 20181106, end: 20181106

REACTIONS (11)
  - Encephalopathy [None]
  - Ventricular fibrillation [None]
  - Renal impairment [None]
  - Hypoxia [None]
  - Neurotoxicity [None]
  - Tachypnoea [None]
  - Agitation [None]
  - Hypotension [None]
  - Liver function test increased [None]
  - Dialysis [None]
  - Shock [None]

NARRATIVE: CASE EVENT DATE: 20181115
